FAERS Safety Report 10369054 (Version 5)
Quarter: 2014Q4

REPORT INFORMATION
  Report Type: Report from Study
  Country: US (occurrence: US)
  Receive Date: 20140807
  Receipt Date: 20141204
  Transmission Date: 20150528
  Serious: Yes (Hospitalization)
  Sender: FDA-Public Use
  Company Number: US-TEVA-388773USA

PATIENT
  Age: 76 Year
  Sex: Male
  Weight: 76 kg

DRUGS (34)
  1. FLONASE [Concomitant]
     Active Substance: FLUTICASONE PROPIONATE
     Indication: UPPER RESPIRATORY TRACT INFECTION
     Dates: start: 20110729
  2. FEXOFENADINE [Concomitant]
     Active Substance: FEXOFENADINE\FEXOFENADINE HYDROCHLORIDE
     Indication: SINUSITIS
     Dates: start: 20110916
  3. GATIFLOXACIN. [Concomitant]
     Active Substance: GATIFLOXACIN
     Indication: EYE INFECTION
     Dates: start: 20111031
  4. LINUM USITATISSIMUM SEED OIL [Concomitant]
     Dates: start: 20130207
  5. AMIODARONE [Concomitant]
     Active Substance: AMIODARONE
     Dates: start: 20110810
  6. TREANDA [Suspect]
     Active Substance: BENDAMUSTINE HYDROCHLORIDE
     Indication: NON-HODGKIN^S LYMPHOMA
     Dosage: 238 EVERY 4 WEEKS/1/POWDER (EXCEPT DUSTING POWDER)/4 WEEK
     Route: 042
     Dates: start: 20110803
  7. MICROLAX [Concomitant]
     Dates: start: 20130203, end: 20130203
  8. CEFPODOXIME [Concomitant]
     Active Substance: CEFPODOXIME
     Dates: start: 20111111, end: 20111115
  9. MACROGOL [Concomitant]
     Active Substance: POLYETHYLENE GLYCOLS
     Dates: start: 20130203, end: 20130203
  10. GATIFLOXACIN. [Concomitant]
     Active Substance: GATIFLOXACIN
     Dates: start: 20111031
  11. COUMADIN [Concomitant]
     Active Substance: WARFARIN SODIUM
     Indication: ATRIAL FIBRILLATION
     Dates: start: 20060801
  12. OFLOXACIN. [Concomitant]
     Active Substance: OFLOXACIN
     Indication: EYE INFECTION
     Dates: start: 20111116
  13. MAGNESIUM HYDROXIDE. [Concomitant]
     Active Substance: MAGNESIUM HYDROXIDE
     Dates: start: 20111030, end: 20111030
  14. CYAMOPSIS TETRAGONOLOBA GUM [Concomitant]
     Dates: start: 20111101, end: 20111101
  15. GOLYTELY [Concomitant]
     Active Substance: POLYETHYLENE GLYCOL 3350\POTASSIUM CHLORIDE\SODIUM BICARBONATE\SODIUM CHLORIDE\SODIUM SULFATE ANHYDROUS
     Dates: start: 20111101, end: 20111101
  16. POTASSIUM CHLORIDE. [Concomitant]
     Active Substance: POTASSIUM CHLORIDE
     Dates: start: 20111124
  17. TREANDA [Suspect]
     Active Substance: BENDAMUSTINE HYDROCHLORIDE
     Dosage: 238 EVERY 4 WEEKS/1/POWDER (EXCEPT DUSTING POWDER)/4 WEEK
     Route: 042
     Dates: start: 20111027
  18. AMLODIPINE [Concomitant]
     Active Substance: AMLODIPINE BESYLATE
     Indication: ATRIAL FIBRILLATION
     Dates: start: 20110601
  19. DULCOLAX [Concomitant]
     Active Substance: BISACODYL OR DOCUSATE SODIUM
     Indication: CONSTIPATION
     Dates: start: 20110820
  20. SENNA [Concomitant]
     Active Substance: SENNA LEAF\SENNOSIDES\SENNOSIDES A AND B
     Dates: start: 20111029, end: 20111029
  21. GOLYTELY [Concomitant]
     Active Substance: POLYETHYLENE GLYCOL 3350\POTASSIUM CHLORIDE\SODIUM BICARBONATE\SODIUM CHLORIDE\SODIUM SULFATE ANHYDROUS
     Dates: start: 20130206, end: 20130206
  22. VALGANCICLOVIR [Concomitant]
     Active Substance: VALGANCICLOVIR
     Dates: start: 20120210
  23. MICROLAX [Concomitant]
     Dates: start: 20111031, end: 20111101
  24. OFLOXACIN. [Concomitant]
     Active Substance: OFLOXACIN
     Dates: start: 20111116
  25. TYLENOL [Concomitant]
     Active Substance: ACETAMINOPHEN
     Indication: MUSCULOSKELETAL PAIN
  26. VALGANCICLOVIR [Concomitant]
     Active Substance: VALGANCICLOVIR
     Indication: CYTOMEGALOVIRUS CHORIORETINITIS
     Dates: start: 20120210
  27. POTASSIUM CHLORIDE. [Concomitant]
     Active Substance: POTASSIUM CHLORIDE
     Indication: HYPOKALAEMIA
     Dates: start: 20111124
  28. METRONIDAZOLE. [Concomitant]
     Active Substance: METRONIDAZOLE
     Dates: start: 20111111, end: 20111115
  29. GANCICLOVIR. [Concomitant]
     Active Substance: GANCICLOVIR
     Dates: start: 20120119, end: 20120209
  30. FLUTICASONE PROPIONATE. [Concomitant]
     Active Substance: FLUTICASONE PROPIONATE
     Dates: start: 20110729
  31. SIMVASTATIN. [Concomitant]
     Active Substance: SIMVASTATIN
     Indication: HYPERLIPIDAEMIA
  32. AMIODARONE [Concomitant]
     Active Substance: AMIODARONE
     Indication: ATRIAL FIBRILLATION
     Dates: start: 20110810
  33. LEVAQUIN [Concomitant]
     Active Substance: LEVOFLOXACIN
     Indication: PNEUMONIA
     Dates: start: 20111124
  34. MAGNESIUM CITRATE. [Concomitant]
     Active Substance: MAGNESIUM CITRATE
     Dates: start: 20111031, end: 20111031

REACTIONS (4)
  - Large intestinal obstruction [Recovered/Resolved]
  - Pneumonia [Recovered/Resolved]
  - Large intestinal obstruction [Recovered/Resolved]
  - Hypotension [Recovered/Resolved]

NARRATIVE: CASE EVENT DATE: 20111101
